FAERS Safety Report 10663172 (Version 1)
Quarter: 2014Q4

REPORT INFORMATION
  Report Type: Spontaneous
  Country: US (occurrence: US)
  Receive Date: 20141218
  Receipt Date: 20141218
  Transmission Date: 20150529
  Serious: No
  Sender: FDA-Public Use
  Company Number: US-GALDERMA-US14004364

PATIENT
  Sex: Female

DRUGS (1)
  1. MIRVASO [Suspect]
     Active Substance: BRIMONIDINE TARTRATE
     Indication: PRODUCT USED FOR UNKNOWN INDICATION
     Dosage: 0.33%
     Route: 061

REACTIONS (7)
  - Emotional distress [Unknown]
  - Skin burning sensation [Recovering/Resolving]
  - Erythema [Not Recovered/Not Resolved]
  - Depressed mood [Unknown]
  - Flushing [Unknown]
  - Condition aggravated [Not Recovered/Not Resolved]
  - Rebound effect [Not Recovered/Not Resolved]

NARRATIVE: CASE EVENT DATE: 20141114
